FAERS Safety Report 24166793 (Version 2)
Quarter: 2024Q4

REPORT INFORMATION
  Report Type: Report from Study
  Country: TH (occurrence: TH)
  Receive Date: 20240802
  Receipt Date: 20241002
  Transmission Date: 20250115
  Serious: Yes (Death, Hospitalization)
  Sender: BOEHRINGER INGELHEIM
  Company Number: TH-BoehringerIngelheim-2024-BI-042917

PATIENT
  Age: 87 Year
  Sex: Male
  Weight: 38 kg

DRUGS (1)
  1. OFEV [Suspect]
     Active Substance: NINTEDANIB
     Indication: Idiopathic pulmonary fibrosis
     Route: 048
     Dates: start: 201903, end: 202407

REACTIONS (4)
  - Septic shock [Fatal]
  - Pulmonary embolism [Fatal]
  - Idiopathic pulmonary fibrosis [Fatal]
  - Gastrointestinal haemorrhage [Unknown]

NARRATIVE: CASE EVENT DATE: 20240701
